FAERS Safety Report 8401786-1 (Version None)
Quarter: 2012Q2

REPORT INFORMATION
  Report Type: 
  Country: None (occurrence: None)
  Receive Date: 20120529
  Receipt Date: 19980908
  Transmission Date: 20120825
  Serious: Yes (Other)
  Sender: FDA-Public Use
  Company Number: 002835

PATIENT
  Age: 78 Year
  Sex: Female

DRUGS (5)
  1. PLETAL [Suspect]
     Dosage: 150 MG, DAILY DOSE, ORAL
     Route: 048
     Dates: start: 19980803, end: 19980907
  2. SULINDAC [Concomitant]
  3. MIZORIBINE (MIZORIBINE) [Concomitant]
  4. ETIZOLAM (ETIZOLAM) [Concomitant]
  5. PREDNISOLONE [Concomitant]

REACTIONS (1)
  - RETINAL VEIN OCCLUSION [None]
